FAERS Safety Report 5509676-9 (Version None)
Quarter: 2007Q4

REPORT INFORMATION
  Report Type: 
  Country: None (occurrence: None)
  Receive Date: 20071107
  Receipt Date: 20071107
  Transmission Date: 20080405
  Serious: Yes (Hospitalization)
  Sender: FDA-Public Use
  Company Number: None

PATIENT
  Age: 69 Year
  Sex: Male
  Weight: 95.2554 kg

DRUGS (4)
  1. LINEZOLID [Suspect]
     Indication: ENTEROCOCCAL INFECTION
     Dosage: 600MG BID PO
     Route: 048
     Dates: start: 20070206, end: 20070306
  2. LINEZOLID [Suspect]
     Indication: STAPHYLOCOCCAL INFECTION
     Dosage: 600MG BID PO
     Route: 048
     Dates: start: 20070206, end: 20070306
  3. ASPIRIN [Concomitant]
  4. VICODIN (B/C CONTAINS APAP) [Concomitant]

REACTIONS (6)
  - DYSPEPSIA [None]
  - HYPERKALAEMIA [None]
  - LACTIC ACIDOSIS [None]
  - NAUSEA [None]
  - PANCYTOPENIA [None]
  - THERAPEUTIC AGENT TOXICITY [None]
